FAERS Safety Report 7693664-0 (Version None)
Quarter: 2011Q3

REPORT INFORMATION
  Report Type: 
  Country: None (occurrence: None)
  Receive Date: 20110819
  Receipt Date: 20110816
  Transmission Date: 20111222
  Serious: Yes (Other)
  Sender: FDA-Public Use
  Company Number: GB-PFIZER INC-2011155700

PATIENT
  Age: 63 Year
  Sex: Female

DRUGS (4)
  1. VARENICLINE TARTRATE [Suspect]
     Dosage: 1 MG, 2X/DAY
     Route: 048
  2. VARENICLINE TARTRATE [Suspect]
     Dosage: 1 MG, UNK
  3. VARENICLINE TARTRATE [Suspect]
     Dosage: UNK
  4. VARENICLINE TARTRATE [Suspect]
     Dosage: UNK

REACTIONS (4)
  - DYSPNOEA [None]
  - ANXIETY [None]
  - PARAESTHESIA [None]
  - JOINT STIFFNESS [None]
